FAERS Safety Report 9594607 (Version 1)
Quarter: 2013Q3

REPORT INFORMATION
  Report Type: Spontaneous
  Country: US (occurrence: None)
  Receive Date: 20130927
  Receipt Date: 20130927
  Transmission Date: 20140515
  Serious: Yes (Other)
  Sender: FDA-Public Use
  Company Number: CABO-13002855

PATIENT
  Age: 52 Year
  Sex: Female

DRUGS (2)
  1. COMETRIQ [Suspect]
     Indication: HEPATIC CANCER
     Route: 048
     Dates: start: 20130513, end: 20130526
  2. AMBIEN [Concomitant]

REACTIONS (6)
  - White blood cell count increased [None]
  - Eructation [None]
  - Hordeolum [None]
  - Dyspepsia [None]
  - Dysgeusia [None]
  - Nasal discomfort [None]
